FAERS Safety Report 8342938-9 (Version None)
Quarter: 2012Q2

REPORT INFORMATION
  Report Type: 
  Country: None (occurrence: None)
  Receive Date: 20120508
  Receipt Date: 20120117
  Transmission Date: 20120825
  Serious: Yes (Death, Other)
  Sender: FDA-Public Use
  Company Number: KR-CELGENEUS-285-20785-09041719

PATIENT

DRUGS (9)
  1. DEXAMETHASONE [Suspect]
     Indication: MULTIPLE MYELOMA
     Route: 065
  2. ASPIRIN [Concomitant]
     Dosage: 100 MILLIGRAM
     Route: 065
  3. THALOMID [Suspect]
     Indication: MULTIPLE MYELOMA
     Dosage: 100 MILLIGRAM
     Route: 048
  4. BORTEZOMIB [Suspect]
     Indication: MULTIPLE MYELOMA
     Route: 041
  5. BORTEZOMIB [Suspect]
     Route: 041
  6. VINCRISTINE [Suspect]
     Indication: MULTIPLE MYELOMA
     Route: 041
  7. ADRIAMYCIN PFS [Suspect]
     Indication: MULTIPLE MYELOMA
     Route: 041
  8. NEUPOGEN [Concomitant]
     Dosage: 400 G/M2
     Route: 058
  9. MELPHALAN HYDROCHLORIDE [Concomitant]
     Dosage: 100 MILLIGRAM/SQ. METER
     Route: 041

REACTIONS (9)
  - THROMBOCYTOPENIA [None]
  - INFECTION [None]
  - NEUROPATHY PERIPHERAL [None]
  - SEPSIS [None]
  - ANAEMIA [None]
  - NEUTROPENIA [None]
  - PNEUMONIA [None]
  - DIABETES MELLITUS [None]
  - DISEASE PROGRESSION [None]
